FAERS Safety Report 4801673-1 (Version None)
Quarter: 2005Q4

REPORT INFORMATION
  Report Type: 
  Country: None (occurrence: None)
  Receive Date: 20051018
  Receipt Date: 20050330
  Transmission Date: 20060501
  Serious: Yes (Death)
  Sender: FDA-Public Use
  Company Number: US-GLAXOSMITHKLINE-A0551975A

PATIENT
  Age: 47 Year
  Sex: Male
  Weight: 111.8 kg

DRUGS (2)
  1. PAXIL [Suspect]
     Indication: DEPRESSION
     Dosage: 40MG PER DAY
     Route: 048
     Dates: start: 20010530
  2. TRANXENE [Concomitant]
     Dosage: 3.75MG AT NIGHT
     Route: 048

REACTIONS (1)
  - COMPLETED SUICIDE [None]
